FAERS Safety Report 5833386-1 (Version None)
Quarter: 2008Q3

REPORT INFORMATION
  Report Type: 
  Country: None (occurrence: None)
  Receive Date: 20080804
  Receipt Date: 20080804
  Transmission Date: 20090109
  Serious: Yes (Life-Threatening, Hospitalization, Disabling, Other)
  Sender: FDA-Public Use
  Company Number: None

PATIENT
  Age: 59 Year
  Sex: Female
  Weight: 45.3597 kg

DRUGS (4)
  1. FEXOFENADINE HCL [Suspect]
     Indication: ALLERGY TO CHEMICALS
     Dosage: 180 MG 1 TAB/DAY  USED FOR SEVERAL DAYS W/ NO EFFECT
  2. COREG CR (CARVEDILOL) [Concomitant]
  3. CARTIA XT (CARDIZEM) [Concomitant]
  4. CLONIDINE HCL (CATAPRES) [Concomitant]

REACTIONS (15)
  - ALOPECIA [None]
  - CONDITION AGGRAVATED [None]
  - DEHYDRATION [None]
  - DIZZINESS [None]
  - DRUG INEFFECTIVE [None]
  - GASTRIC DISORDER [None]
  - INFLAMMATION [None]
  - MULTIPLE CHEMICAL SENSITIVITY [None]
  - NAUSEA [None]
  - PHARMACEUTICAL PRODUCT COMPLAINT [None]
  - RASH [None]
  - SOMNOLENCE [None]
  - THYROID DISORDER [None]
  - URTICARIA [None]
  - WEIGHT DECREASED [None]
